FAERS Safety Report 25785902 (Version 1)
Quarter: 2025Q3

REPORT INFORMATION
  Report Type: Spontaneous
  Country: US (occurrence: US)
  Receive Date: 20250910
  Receipt Date: 20250910
  Transmission Date: 20251021
  Serious: Yes (Other)
  Sender: TEVA
  Company Number: US-TEVA-VS-3369015

PATIENT
  Age: 38 Year
  Sex: Male

DRUGS (2)
  1. UZEDY [Suspect]
     Active Substance: RISPERIDONE
     Indication: Psychotic disorder
     Dosage: FORM STRENGTH: 50/0.14MG/ML
     Route: 058
  2. UZEDY [Suspect]
     Active Substance: RISPERIDONE
     Indication: Schizoaffective disorder bipolar type

REACTIONS (2)
  - Soliloquy [Unknown]
  - Off label use [Unknown]
